FAERS Safety Report 12398451 (Version 12)
Quarter: 2017Q2

REPORT INFORMATION
  Report Type: Spontaneous
  Country: US (occurrence: US)
  Receive Date: 20160524
  Receipt Date: 20170602
  Transmission Date: 20170830
  Serious: Yes (Hospitalization)
  Sender: FDA-Public Use
  Company Number: US-ACTELION-A-US2016-136317

PATIENT
  Age: 59 Year
  Sex: Female
  Weight: 67.12 kg

DRUGS (3)
  1. COUMADIN [Concomitant]
     Active Substance: WARFARIN SODIUM
  2. VELETRI [Suspect]
     Active Substance: EPOPROSTENOL
     Dosage: 46 NG/KG, PER MIN
     Route: 042
     Dates: start: 20140424
  3. VELETRI [Suspect]
     Active Substance: EPOPROSTENOL
     Indication: PULMONARY ARTERIAL HYPERTENSION
     Dosage: 46.4 NG/KG, PER MIN
     Route: 042

REACTIONS (12)
  - Device related infection [Unknown]
  - Catheter management [Unknown]
  - Pain in jaw [Not Recovered/Not Resolved]
  - Catheter site haemorrhage [Unknown]
  - Catheter site discharge [Unknown]
  - Administration site odour [Unknown]
  - Catheter site discolouration [Unknown]
  - Catheter site erythema [Unknown]
  - Pain in extremity [Not Recovered/Not Resolved]
  - Staphylococcal infection [Unknown]
  - Catheter site pruritus [Unknown]
  - Catheter site inflammation [Recovering/Resolving]

NARRATIVE: CASE EVENT DATE: 20160720
